FAERS Safety Report 5715164-7 (Version None)
Quarter: 2008Q2

REPORT INFORMATION
  Report Type: 
  Country: None (occurrence: None)
  Receive Date: 20080423
  Receipt Date: 20080415
  Transmission Date: 20081010
  Serious: Yes (Other)
  Sender: FDA-Public Use
  Company Number: GB-ELI_LILLY_AND_COMPANY-GB200802001278

PATIENT
  Sex: Male

DRUGS (5)
  1. CYMBALTA [Suspect]
     Indication: NEURALGIA
     Dosage: 30 MG, DAILY (1/D)
     Route: 048
     Dates: start: 20080129, end: 20080201
  2. NAPRATEC [Concomitant]
     Dosage: 1 D/F, 2/D
     Route: 048
  3. PREDNISOLONE [Concomitant]
     Dosage: 10 MG, 2/D
     Route: 048
  4. METFORMIN HCL [Concomitant]
     Dosage: 1 G, 2/D
     Route: 048
  5. OMEPRAZOLE [Concomitant]
     Dosage: 20 MG, DAILY (1/D)
     Route: 048

REACTIONS (1)
  - GLAUCOMA [None]
